FAERS Safety Report 11290818 (Version 1)
Quarter: 2015Q3

REPORT INFORMATION
  Report Type: Spontaneous
  Country: US (occurrence: US)
  Receive Date: 20150722
  Receipt Date: 20150722
  Transmission Date: 20151125
  Serious: Yes (Hospitalization)
  Sender: FDA-Public Use
  Company Number: US-UNITED THERAPEUTICS-UNT-2015-000458

PATIENT
  Age: 26 Year
  Sex: Male
  Weight: 78.46 kg

DRUGS (7)
  1. REMODULIN [Suspect]
     Active Substance: TREPROSTINIL
     Indication: PULMONARY ARTERIAL HYPERTENSION
     Dosage: 0.120 ?G/KG, CONTINUING
     Route: 058
     Dates: start: 20140131, end: 201501
  2. REMODULIN [Suspect]
     Active Substance: TREPROSTINIL
     Dosage: UNK
     Route: 041
     Dates: start: 20150210
  3. REMODULIN [Suspect]
     Active Substance: TREPROSTINIL
     Dosage: 0.080 ?G/KG, CONTINUING
     Route: 041
  4. OPSUMIT [Concomitant]
     Active Substance: MACITENTAN
     Indication: PRODUCT USED FOR UNKNOWN INDICATION
  5. REMODULIN [Suspect]
     Active Substance: TREPROSTINIL
     Dosage: 0.120 ?G/KG, CONTINUING
     Route: 041
  6. REMODULIN [Suspect]
     Active Substance: TREPROSTINIL
     Dosage: 0.124 ?G/KG, CONTINUING
     Route: 041
     Dates: start: 20150203
  7. CHLORAPREP [Suspect]
     Active Substance: CHLORHEXIDINE GLUCONATE\ISOPROPYL ALCOHOL
     Indication: PRODUCT USED FOR UNKNOWN INDICATION

REACTIONS (13)
  - Infusion site pain [Unknown]
  - Thrombosis in device [Unknown]
  - Injection site pustule [Unknown]
  - Device related infection [Recovered/Resolved]
  - Dyspnoea [Unknown]
  - Infusion site nodule [Unknown]
  - Infusion site reaction [Unknown]
  - Palpitations [Unknown]
  - Infusion site pustule [Unknown]
  - Flushing [Unknown]
  - Injection site pain [Unknown]
  - Drug dose omission [Unknown]
  - Dermatitis contact [Unknown]

NARRATIVE: CASE EVENT DATE: 20150107
